FAERS Safety Report 5386357-6 (Version None)
Quarter: 2007Q3

REPORT INFORMATION
  Report Type: 
  Country: None (occurrence: None)
  Receive Date: 20070705
  Receipt Date: 20070705
  Transmission Date: 20080115
  Serious: No
  Sender: FDA-Public Use
  Company Number: None

PATIENT
  Age: 71 Year
  Sex: Female

DRUGS (1)
  1. HYDROXYCHLOROQUINE TABS 698; 200MG; WATSON [Suspect]
     Indication: INFLAMMATION
     Dosage: TAKE 2  TABLETS BY MOUTH DAILY (PATIENT HAS DISCONTINUED    MID-MAY)
     Route: 048
     Dates: start: 20070420

REACTIONS (3)
  - DYSGEUSIA [None]
  - PHARMACEUTICAL PRODUCT COMPLAINT [None]
  - RASH [None]
